FAERS Safety Report 7720744-3 (Version None)
Quarter: 2011Q3

REPORT INFORMATION
  Report Type: 
  Country: None (occurrence: None)
  Receive Date: 20110831
  Receipt Date: 20110823
  Transmission Date: 20111222
  Serious: Yes (Death, Other)
  Sender: FDA-Public Use
  Company Number: FR-ASTELLAS-2011EU005695

PATIENT
  Age: 67 Year
  Sex: Female

DRUGS (1)
  1. MYCAMINE [Suspect]
     Dosage: 50 MG, UID/QD
     Route: 065

REACTIONS (2)
  - DEATH [None]
  - ASPERGILLOSIS [None]
